FAERS Safety Report 10038159 (Version 1)
Quarter: 2014Q1

REPORT INFORMATION
  Report Type: Spontaneous
  Country: US (occurrence: US)
  Receive Date: 20140326
  Receipt Date: 20140326
  Transmission Date: 20141002
  Serious: No
  Sender: FDA-Public Use
  Company Number: US-PFIZER INC-2014082372

PATIENT
  Sex: Female

DRUGS (2)
  1. XALATAN [Suspect]
     Indication: GLAUCOMA
     Dosage: UNK
     Dates: start: 2008
  2. PILOCARPINE HYDROCHLORIDE [Suspect]
     Indication: GLAUCOMA
     Dosage: UNK
     Dates: start: 2008

REACTIONS (1)
  - Drug ineffective [Unknown]
